FAERS Safety Report 21930967 (Version 1)
Quarter: 2023Q1

REPORT INFORMATION
  Report Type: Spontaneous
  Country: CN (occurrence: CN)
  Receive Date: 20230131
  Receipt Date: 20230131
  Transmission Date: 20230417
  Serious: Yes (Hospitalization)
  Sender: FDA-Public Use
  Company Number: CN-BAYER-2023P005807

PATIENT
  Age: 28 Year
  Sex: Female
  Weight: 50 kg

DRUGS (1)
  1. DROSPIRENONE\ETHINYL ESTRADIOL [Suspect]
     Active Substance: DROSPIRENONE\ETHINYL ESTRADIOL
     Indication: Abnormal uterine bleeding

REACTIONS (6)
  - Splenic vein thrombosis [Recovered/Resolved]
  - Portosplenomesenteric venous thrombosis [Recovered/Resolved]
  - Intestinal ischaemia [None]
  - Intestinal dilatation [None]
  - Intestinal stenosis [None]
  - Off label use [None]
